FAERS Safety Report 7328184-6 (Version None)
Quarter: 2011Q1

REPORT INFORMATION
  Report Type: 
  Country: None (occurrence: None)
  Receive Date: 20110303
  Receipt Date: 20110303
  Transmission Date: 20110831
  Serious: Yes (Hospitalization)
  Sender: FDA-Public Use
  Company Number: PHHO2010DE09534

PATIENT
  Sex: Male
  Weight: 90.4 kg

DRUGS (4)
  1. PLACEBO [Suspect]
     Indication: CARCINOID TUMOUR
     Dosage: PLACEBO
     Dates: start: 20070821, end: 20100426
  2. BETA BLOCKING AGENTS [Concomitant]
  3. SANDOSTATIN LAR [Suspect]
     Indication: CARCINOID TUMOUR
     Dosage: UNK
     Dates: start: 20070821
  4. RAD001 [Suspect]
     Indication: CARCINOID TUMOUR
     Dosage: 10 MG
     Route: 048
     Dates: start: 20100427

REACTIONS (4)
  - FATIGUE [None]
  - HYPERGLYCAEMIA [None]
  - WEIGHT DECREASED [None]
  - CONDITION AGGRAVATED [None]
